FAERS Safety Report 4373911-3 (Version None)
Quarter: 2004Q2

REPORT INFORMATION
  Report Type: 
  Country: None (occurrence: None)
  Receive Date: 20040604
  Receipt Date: 20040524
  Transmission Date: 20050107
  Serious: Yes (Hospitalization)
  Sender: FDA-Public Use
  Company Number: 232543K04USA

PATIENT
  Age: 50 Year
  Sex: Male

DRUGS (3)
  1. REBIF [Suspect]
     Indication: MULTIPLE SCLEROSIS
     Dosage: 44 MCG, 3 IN 1 WEEKS, SUBCUTANEOUS
     Route: 058
     Dates: start: 20030723
  2. BACLOFEN [Concomitant]
  3. VICODIN [Concomitant]

REACTIONS (8)
  - ADRENAL INSUFFICIENCY [None]
  - BRADYCARDIA [None]
  - COMA [None]
  - HYPOTHERMIA [None]
  - INFECTION [None]
  - INSOMNIA [None]
  - PAIN [None]
  - TREMOR [None]
